FAERS Safety Report 15485084 (Version 1)
Quarter: 2018Q4

REPORT INFORMATION
  Report Type: Spontaneous
  Country: US (occurrence: US)
  Receive Date: 20181010
  Receipt Date: 20181010
  Transmission Date: 20190205
  Serious: No
  Sender: FDA-Public Use
  Company Number: US-ROCHE-2123054

PATIENT
  Age: 77 Year
  Sex: Male
  Weight: 122.58 kg

DRUGS (2)
  1. ESBRIET [Suspect]
     Active Substance: PIRFENIDONE
     Indication: IDIOPATHIC PULMONARY FIBROSIS
     Dosage: 3 TABLETS WITH MEAL ;ONGOING: YES
     Route: 048
     Dates: start: 201710
  2. RANEXA [Concomitant]
     Active Substance: RANOLAZINE
     Dosage: ONGOING: YES
     Route: 065

REACTIONS (2)
  - No adverse event [Unknown]
  - Extra dose administered [Unknown]

NARRATIVE: CASE EVENT DATE: 20180509
